FAERS Safety Report 16028390 (Version 1)
Quarter: 2019Q1

REPORT INFORMATION
  Report Type: Report from Study
  Country: JP (occurrence: JP)
  Receive Date: 20190304
  Receipt Date: 20190304
  Transmission Date: 20190418
  Serious: Yes (Other)
  Sender: FDA-Public Use
  Company Number: JP-ROCHE-2273765

PATIENT
  Age: 58 Year
  Sex: Female

DRUGS (5)
  1. CARBOPLATIN. [Suspect]
     Active Substance: CARBOPLATIN
     Indication: OVARIAN CANCER
     Dosage: 6 MG/ML/MIN,
     Route: 042
  2. APIXABAN [Concomitant]
     Active Substance: APIXABAN
  3. DAIKENCHUTO [Concomitant]
     Active Substance: HERBALS
  4. BEVACIZUMAB. [Suspect]
     Active Substance: BEVACIZUMAB
     Indication: OVARIAN CANCER
     Route: 042
  5. PACLITAXEL. [Suspect]
     Active Substance: PACLITAXEL
     Indication: OVARIAN CANCER
     Dosage: DAY 1
     Route: 042

REACTIONS (5)
  - Peripheral sensory neuropathy [Unknown]
  - Neutropenia [Unknown]
  - Anaemia [Unknown]
  - Malaise [Unknown]
  - Alopecia [Unknown]
